FAERS Safety Report 20840589 (Version 1)
Quarter: 2022Q2

REPORT INFORMATION
  Report Type: Spontaneous
  Country: US (occurrence: None)
  Receive Date: 20220517
  Receipt Date: 20220517
  Transmission Date: 20220720
  Serious: No
  Sender: FDA-Public Use
  Company Number: None

PATIENT
  Age: 37 Year
  Sex: Female

DRUGS (1)
  1. TALTZ [Suspect]
     Active Substance: IXEKIZUMAB
     Indication: Ankylosing spondylitis
     Dosage: FREQUENCY : MONTHLY;?
     Route: 058
     Dates: start: 20220501

REACTIONS (7)
  - Injection site reaction [None]
  - Urticaria [None]
  - Injection site pain [None]
  - Pruritus [None]
  - Skin discolouration [None]
  - Pain [None]
  - Feeling hot [None]

NARRATIVE: CASE EVENT DATE: 20220512
